FAERS Safety Report 19018279 (Version 1)
Quarter: 2021Q1

REPORT INFORMATION
  Report Type: Report from Study
  Country: US (occurrence: US)
  Receive Date: 20210317
  Receipt Date: 20210317
  Transmission Date: 20210420
  Serious: Yes (Hospitalization)
  Sender: FDA-Public Use
  Company Number: US-ROCHE-2785683

PATIENT
  Age: 60 Year
  Sex: Female
  Weight: 98.9 kg

DRUGS (2)
  1. OBINUTUZUMAB. [Suspect]
     Active Substance: OBINUTUZUMAB
     Indication: CHRONIC LYMPHOCYTIC LEUKAEMIA
     Dosage: 100 MG IV ON DAY 1, CYCLE 1?900 MG IV ON DAY 2, CYCLE 1?1000 MG IV ON DAY 8, CYCLE 1?1000 MG IV ON D
     Route: 042
     Dates: start: 20190917, end: 20200211
  2. IBRUTINIB [Suspect]
     Active Substance: IBRUTINIB
     Indication: CHRONIC LYMPHOCYTIC LEUKAEMIA
     Dosage: 420 MG PO QD ON DAYS 1?28?TOTAL ADMINISTERED DOSE: 16800 MG?LAST DOSE ADMINISTERED: 18/JAN/2021
     Route: 048
     Dates: start: 20190917, end: 20210118

REACTIONS (1)
  - Abdominal infection [Not Recovered/Not Resolved]

NARRATIVE: CASE EVENT DATE: 20210126
